FAERS Safety Report 22594525 (Version 1)
Quarter: 2023Q2

REPORT INFORMATION
  Report Type: Spontaneous
  Country: CH (occurrence: CH)
  Receive Date: 20230613
  Receipt Date: 20230613
  Transmission Date: 20230722
  Serious: Yes (Life-Threatening, Hospitalization, Other)
  Sender: FDA-Public Use
  Company Number: None

PATIENT
  Age: 7 Year
  Sex: Female
  Weight: 25 kg

DRUGS (7)
  1. TRILEPTAL [Suspect]
     Active Substance: OXCARBAZEPINE
     Indication: Epilepsy
     Dosage: 60 MG, 2 SEPARATED DOSES, 2 TIMES 6 ML PER DAY BASED ON 30 MG / KG PER DAY. (ON TARGET DOSE SINCE 04
     Route: 048
     Dates: start: 20230426, end: 20230509
  2. GABAPENTIN [Concomitant]
     Active Substance: GABAPENTIN
     Indication: Epilepsy
     Dosage: 600 MG.2 WEEKS BEFORE HOSPITALISATION DATE
     Route: 048
     Dates: start: 202304
  3. CLOBAZAM [Concomitant]
     Active Substance: CLOBAZAM
     Indication: Epilepsy
     Dosage: 7.5 MG, QD 2 WEEKS BEFORE HOSPITALISATION DATE, THIS THERAPY WAS STARTED (APPROXIMATELY IN APRIL 202
     Route: 048
     Dates: start: 202304
  4. LEVETIRACETAM [Concomitant]
     Active Substance: LEVETIRACETAM
     Indication: Muscle spasms
     Dosage: THERAPY WAS HALTED
     Route: 042
  5. VIMPAT [Concomitant]
     Active Substance: LACOSAMIDE
     Indication: Product used for unknown indication
     Dosage: EVERY 12 HOURS
     Route: 048
  6. DAFALGAN [Concomitant]
     Active Substance: ACETAMINOPHEN
     Indication: Product used for unknown indication
     Dosage: 450 MG, Q6H
     Route: 048
  7. MIDAZOLAM HYDROCHLORIDE [Concomitant]
     Active Substance: MIDAZOLAM HYDROCHLORIDE
     Indication: Muscle spasms
     Dosage: 7.5 MG, QD
     Route: 048

REACTIONS (4)
  - Petechiae [Recovered/Resolved]
  - Thrombocytopenia [Recovered/Resolved]
  - Leukopenia [Recovered/Resolved]
  - Rash [Recovered/Resolved]

NARRATIVE: CASE EVENT DATE: 20230505
